FAERS Safety Report 5881428-X (Version None)
Quarter: 2008Q3

REPORT INFORMATION
  Report Type: 
  Country: None (occurrence: None)
  Receive Date: 20080912
  Receipt Date: 20080701
  Transmission Date: 20090109
  Serious: No
  Sender: FDA-Public Use
  Company Number: US-ABBOTT-08P-163-0460373-00

PATIENT
  Sex: Female
  Weight: 57.204 kg

DRUGS (4)
  1. HUMIRA [Suspect]
     Indication: CROHN'S DISEASE
     Route: 058
     Dates: start: 20080301, end: 20080301
  2. HUMIRA [Suspect]
     Route: 058
  3. HUMIRA [Suspect]
     Route: 058
  4. PREDNISONE TAB [Concomitant]
     Indication: CROHN'S DISEASE
     Route: 048
     Dates: start: 20080628

REACTIONS (8)
  - ANOREXIA [None]
  - CROHN'S DISEASE [None]
  - DECREASED APPETITE [None]
  - FAECAL INCONTINENCE [None]
  - INCONTINENCE [None]
  - LABORATORY TEST ABNORMAL [None]
  - TENDERNESS [None]
  - VOMITING [None]
